FAERS Safety Report 5822441-8 (Version None)
Quarter: 2008Q3

REPORT INFORMATION
  Report Type: 
  Country: None (occurrence: None)
  Receive Date: 20080725
  Receipt Date: 20080307
  Transmission Date: 20090109
  Serious: No
  Sender: FDA-Public Use
  Company Number: US-AMGEN-KDL269270

PATIENT
  Sex: Female
  Weight: 45.9 kg

DRUGS (3)
  1. PROCRIT [Suspect]
     Indication: ANAEMIA OF MALIGNANT DISEASE
     Dates: start: 20080101
  2. SYNTHROID [Concomitant]
  3. ATENOLOL [Concomitant]

REACTIONS (3)
  - ALOPECIA [None]
  - BACK PAIN [None]
  - HEADACHE [None]
